FAERS Safety Report 13086770 (Version 1)
Quarter: 2017Q1

REPORT INFORMATION
  Report Type: Spontaneous
  Country: GB (occurrence: GB)
  Receive Date: 20170104
  Receipt Date: 20170104
  Transmission Date: 20170428
  Serious: Yes (Life-Threatening)
  Sender: FDA-Public Use
  Company Number: GB-AMGEN-GBRSP2016185696

PATIENT
  Age: 46 Year
  Sex: Male
  Weight: 101.6 kg

DRUGS (4)
  1. ENBREL [Suspect]
     Active Substance: ETANERCEPT
     Indication: ANKYLOSING SPONDYLITIS
     Dosage: 50 MG, UNK
     Route: 051
     Dates: end: 20161116
  2. DULOXETINE. [Concomitant]
     Active Substance: DULOXETINE
     Dosage: UNK
  3. LANSOPRAZOL [Concomitant]
     Active Substance: LANSOPRAZOLE
     Dosage: UNK
  4. ARCOXIA [Suspect]
     Active Substance: ETORICOXIB
     Indication: ANKYLOSING SPONDYLITIS
     Route: 048
     Dates: start: 2006, end: 20161116

REACTIONS (2)
  - Pulmonary embolism [Not Recovered/Not Resolved]
  - Thrombosis [Not Recovered/Not Resolved]

NARRATIVE: CASE EVENT DATE: 20161116
